FAERS Safety Report 6978386-3 (Version None)
Quarter: 2010Q3

REPORT INFORMATION
  Report Type: 
  Country: None (occurrence: None)
  Receive Date: 20100913
  Receipt Date: 20100902
  Transmission Date: 20110219
  Serious: Yes (Hospitalization, Other)
  Sender: FDA-Public Use
  Company Number: US-ASTRAZENECA-2010SE40209

PATIENT
  Age: 26982 Day
  Sex: Female
  Weight: 65.3 kg

DRUGS (6)
  1. CRESTOR [Suspect]
     Indication: HYPERCHOLESTEROLAEMIA
     Route: 048
  2. CRESTOR [Suspect]
     Dosage: 20MG AND 40MG TABLETS DAILY, TOTAL 60MG DAILY
     Route: 048
     Dates: start: 20100714, end: 20100801
  3. PLAVIX [Concomitant]
     Dosage: 75
  4. EXFORGE [Concomitant]
     Dosage: 10/160
  5. ASPIRIN [Concomitant]
  6. POTASSIUM CHLORIDE [Concomitant]

REACTIONS (2)
  - ACCIDENTAL OVERDOSE [None]
  - RHABDOMYOLYSIS [None]
